FAERS Safety Report 4284107-8 (Version None)
Quarter: 2004Q1

REPORT INFORMATION
  Report Type: 
  Country: None (occurrence: None)
  Receive Date: 20040130
  Receipt Date: 20040128
  Transmission Date: 20041129
  Serious: Yes (Disabling)
  Sender: FDA-Public Use
  Company Number: MK200401-0318-1

PATIENT
  Age: 67 Year
  Sex: Male

DRUGS (1)
  1. TECHNESCAN HDP [Suspect]
     Indication: BONE SCAN
     Dosage: 25 MCI, ONCE
     Dates: start: 20030503, end: 20030503

REACTIONS (4)
  - BONE PAIN [None]
  - CONTRAST MEDIA REACTION [None]
  - ERECTILE DYSFUNCTION [None]
  - TESTICULAR SWELLING [None]
